FAERS Safety Report 4425068-8 (Version None)
Quarter: 2004Q3

REPORT INFORMATION
  Report Type: 
  Country: None (occurrence: None)
  Receive Date: 20040813
  Receipt Date: 20040723
  Transmission Date: 20050211
  Serious: Yes (Other)
  Sender: FDA-Public Use
  Company Number: BR-BRISTOL-MYERS SQUIBB COMPANY-12652012

PATIENT
  Age: 80 Year
  Sex: Female

DRUGS (4)
  1. TEQUIN [Suspect]
     Indication: PNEUMONIA
     Route: 042
     Dates: start: 20040625, end: 20040625
  2. OMEPRAZOLE [Concomitant]
  3. ENOXAPARIN SODIUM [Concomitant]
  4. PROPAFENONE HCL [Concomitant]

REACTIONS (3)
  - ALVEOLITIS ALLERGIC [None]
  - PLEURAL EFFUSION [None]
  - RESPIRATORY FAILURE [None]
